FAERS Safety Report 11157172 (Version 1)
Quarter: 2015Q2

REPORT INFORMATION
  Report Type: Spontaneous
  Country: US (occurrence: None)
  Receive Date: 20150601
  Receipt Date: 20150601
  Transmission Date: 20150821
  Serious: Yes (Other)
  Sender: FDA-Public Use
  Company Number: None

PATIENT
  Sex: Female

DRUGS (1)
  1. MICONAZOLE NITRATE. [Suspect]
     Active Substance: MICONAZOLE NITRATE
     Indication: FUNGAL INFECTION
     Dosage: TWICE DAILY APPLIED TO A SURFACE USUALLY THE SKIN
     Route: 061

REACTIONS (6)
  - Burning sensation [None]
  - Vulval disorder [None]
  - Swelling [None]
  - Deformity [None]
  - Pruritus [None]
  - Scab [None]

NARRATIVE: CASE EVENT DATE: 20150515
